FAERS Safety Report 9962689 (Version 2)
Quarter: 2014Q1

REPORT INFORMATION
  Report Type: Report from Study
  Country: US (occurrence: US)
  Receive Date: 20140305
  Receipt Date: 20140305
  Transmission Date: 20141002
  Serious: No
  Sender: FDA-Public Use
  Company Number: US-ABBVIE-13P-163-1053780-00

PATIENT
  Age: 21 Year
  Sex: Male
  Weight: 52.66 kg

DRUGS (5)
  1. HUMIRA [Suspect]
     Indication: CROHN^S DISEASE
     Dosage: TAKES EVERY 2 TO 3 WEEKS BASED ON BILIRUBIN LEVEL
     Dates: start: 20121123
  2. LUNESTA [Concomitant]
     Indication: PRODUCT USED FOR UNKNOWN INDICATION
     Dates: end: 20130204
  3. ZOLOFT [Concomitant]
     Indication: DEPRESSION
     Dates: end: 20130204
  4. OMEPRAZOLE [Concomitant]
     Indication: HIATUS HERNIA
  5. ASACOL [Concomitant]
     Indication: CROHN^S DISEASE

REACTIONS (6)
  - Splenomegaly [Unknown]
  - Blood bilirubin increased [Recovering/Resolving]
  - Injection site pain [Recovering/Resolving]
  - Injection site haemorrhage [Recovering/Resolving]
  - Gastrointestinal pain [Not Recovered/Not Resolved]
  - Defaecation urgency [Not Recovered/Not Resolved]
